FAERS Safety Report 8302365-7 (Version None)
Quarter: 2012Q2

REPORT INFORMATION
  Report Type: 
  Country: None (occurrence: None)
  Receive Date: 20120418
  Receipt Date: 20120403
  Transmission Date: 20120825
  Serious: Yes (Death)
  Sender: FDA-Public Use
  Company Number: OPIR20120021

PATIENT
  Age: 42 Year
  Sex: Male
  Weight: 97.2966 kg

DRUGS (10)
  1. CARBAMAZEPINE [Suspect]
     Indication: PRODUCT USED FOR UNKNOWN INDICATION
  2. OPANA [Suspect]
     Indication: PRODUCT USED FOR UNKNOWN INDICATION
     Dosage: ORAL
     Route: 048
  3. OXYCODONE HCL [Suspect]
     Indication: PRODUCT USED FOR UNKNOWN INDICATION
     Dosage: ORAL
     Route: 048
  4. DIAZEPAM [Suspect]
     Indication: PRODUCT USED FOR UNKNOWN INDICATION
     Dosage: ORAL
     Route: 048
  5. MORPHINE SUL TAB [Suspect]
     Indication: PRODUCT USED FOR UNKNOWN INDICATION
     Dosage: ORAL
     Route: 048
  6. OXYCODONE/ACETAMINOPHEN (PARACETAMOL, OXYCODONE HYDROCHLORIDE) (TABLET [Concomitant]
  7. METOPROLOL SUCCINATE [Concomitant]
  8. LITHIUM CARBONATE [Concomitant]
  9. NAPROXEN [Concomitant]
  10. ALPRAZOLAM [Suspect]
     Indication: PRODUCT USED FOR UNKNOWN INDICATION
     Dosage: ORAL
     Route: 048

REACTIONS (12)
  - RESPIRATORY ARREST [None]
  - DRUG ABUSE [None]
  - VISCERAL CONGESTION [None]
  - CARDIOMEGALY [None]
  - MULTIPLE DRUG OVERDOSE ACCIDENTAL [None]
  - DEPRESSED LEVEL OF CONSCIOUSNESS [None]
  - HEPATIC STEATOSIS [None]
  - RESPIRATORY DEPRESSION [None]
  - TOXICITY TO VARIOUS AGENTS [None]
  - ARTERIOSCLEROSIS CORONARY ARTERY [None]
  - AORTIC ARTERIOSCLEROSIS [None]
  - UNRESPONSIVE TO STIMULI [None]
